FAERS Safety Report 8716848 (Version 2)
Quarter: 2013Q1

REPORT INFORMATION
  Report Type: Spontaneous
  Country: US (occurrence: US)
  Receive Date: 20120810
  Receipt Date: 20130124
  Transmission Date: 20140127
  Serious: Yes (Other)
  Sender: FDA-Public Use
  Company Number: US-BAYER-2012-079009

PATIENT
  Age: 27 Year
  Sex: Female

DRUGS (7)
  1. YASMIN [Suspect]
     Indication: ACNE
     Dosage: UNK
  2. YASMIN [Suspect]
     Indication: CONTRACEPTION
  3. YAZ [Suspect]
     Dosage: UNK
  4. DILAUDID [Concomitant]
  5. CAFFEINE [Concomitant]
     Dosage: 500 MG, UNK
  6. BENADRYL [Concomitant]
     Dosage: 25 MG, UNK
  7. COMPAZINE [Concomitant]
     Dosage: 5 MG, UNK

REACTIONS (1)
  - Transient ischaemic attack [None]
